FAERS Safety Report 12831540 (Version 1)
Quarter: 2016Q4

REPORT INFORMATION
  Report Type: Spontaneous
  Country: US (occurrence: US)
  Receive Date: 20161009
  Receipt Date: 20161009
  Transmission Date: 20170207
  Serious: No
  Sender: FDA-Public Use
  Company Number: US-TEVA-698542USA

PATIENT
  Sex: Female

DRUGS (12)
  1. TYLENOL [Concomitant]
     Active Substance: ACETAMINOPHEN
  2. AMBIEN [Concomitant]
     Active Substance: ZOLPIDEM TARTRATE
  3. GABAPENTIN. [Concomitant]
     Active Substance: GABAPENTIN
  4. PROTONIX [Concomitant]
     Active Substance: PANTOPRAZOLE SODIUM
  5. DEPAKOTE [Concomitant]
     Active Substance: DIVALPROEX SODIUM
  6. SUBOXONE [Concomitant]
     Active Substance: BUPRENORPHINE HYDROCHLORIDE\NALOXONE HYDROCHLORIDE
  7. GLUCOSAMINE [Concomitant]
     Active Substance: GLUCOSAMINE
  8. COPAXONE [Suspect]
     Active Substance: GLATIRAMER ACETATE
     Indication: MULTIPLE SCLEROSIS
     Route: 058
     Dates: start: 20150319
  9. KLONOPIN [Concomitant]
     Active Substance: CLONAZEPAM
  10. PRIMIDONE. [Concomitant]
     Active Substance: PRIMIDONE
  11. PROPRANOLOL [Concomitant]
     Active Substance: PROPRANOLOL\PROPRANOLOL HYDROCHLORIDE
  12. CLONIDINE. [Concomitant]
     Active Substance: CLONIDINE

REACTIONS (1)
  - Injection site reaction [Not Recovered/Not Resolved]
